FAERS Safety Report 12535248 (Version 1)
Quarter: 2016Q3

REPORT INFORMATION
  Report Type: Spontaneous
  Country: US (occurrence: US)
  Receive Date: 20160707
  Receipt Date: 20160707
  Transmission Date: 20161109
  Serious: Yes (Hospitalization, Other)
  Sender: FDA-Public Use
  Company Number: US-ZYDUS-011502

PATIENT
  Age: 79 Year
  Sex: Female

DRUGS (2)
  1. WARFARIN [Suspect]
     Active Substance: WARFARIN
     Indication: DEEP VEIN THROMBOSIS
     Route: 065
  2. ENOXAPARIN [Concomitant]
     Active Substance: ENOXAPARIN
     Indication: DEEP VEIN THROMBOSIS
     Route: 065

REACTIONS (7)
  - Hypovolaemic shock [Unknown]
  - Skin discolouration [Unknown]
  - Haematoma [Unknown]
  - Hypotension [Unknown]
  - Lethargy [Unknown]
  - Tachycardia [Unknown]
  - Flank pain [Unknown]
